FAERS Safety Report 5775804-3 (Version None)
Quarter: 2008Q2

REPORT INFORMATION
  Report Type: 
  Country: None (occurrence: None)
  Receive Date: 20080617
  Receipt Date: 20080527
  Transmission Date: 20081010
  Serious: No
  Sender: FDA-Public Use
  Company Number: US-BOEHRINGER INGELHEIM GMBH, GERMANY-2008-BP-08179BP

PATIENT
  Sex: Female

DRUGS (5)
  1. MIRAPEX [Suspect]
     Indication: DEPRESSION
     Route: 048
     Dates: start: 20080501
  2. CLONAZEPAM [Concomitant]
     Indication: DEPRESSION
  3. SEROQUEL [Concomitant]
     Indication: DEPRESSION
  4. CYTOMEL [Concomitant]
     Indication: HYPOTHYROIDISM
  5. SYNTHROID [Concomitant]
     Indication: HYPOTHYROIDISM

REACTIONS (3)
  - DEPRESSED MOOD [None]
  - FATIGUE [None]
  - HEADACHE [None]
